FAERS Safety Report 26052013 (Version 3)
Quarter: 2025Q4

REPORT INFORMATION
  Report Type: Spontaneous
  Country: EU (occurrence: EU)
  Receive Date: 20251117
  Receipt Date: 20251207
  Transmission Date: 20260119
  Serious: Yes (Hospitalization, Other)
  Sender: CELLTRION
  Company Number: EU-SAMSUNG BIOEPIS-SB-2025-36819

PATIENT

DRUGS (3)
  1. BEVACIZUMAB [Suspect]
     Active Substance: BEVACIZUMAB
     Indication: Hepatocellular carcinoma
     Dosage: CYCLICAL/ UNK (EIGHT CYCLES)
     Route: 065
  2. ATEZOLIZUMAB [Suspect]
     Active Substance: ATEZOLIZUMAB
     Indication: Hepatocellular carcinoma
     Dosage: CYCLICAL
  3. ATEZOLIZUMAB [Concomitant]
     Active Substance: ATEZOLIZUMAB
     Indication: Hepatocellular carcinoma
     Dosage: UNK (EIGHT CYCLES)
     Route: 065

REACTIONS (11)
  - Wound evisceration [Recovered/Resolved]
  - Intestinal prolapse [Recovered/Resolved]
  - Hepatic cirrhosis [Unknown]
  - Jaundice cholestatic [Unknown]
  - Cholangitis acute [Unknown]
  - Bile duct stenosis [Unknown]
  - Transplant rejection [Unknown]
  - Incision site discharge [Unknown]
  - Impaired healing [Recovering/Resolving]
  - Drug effective for unapproved indication [Unknown]
  - Off label use [Unknown]
